FAERS Safety Report 11258282 (Version 1)
Quarter: 2015Q3

REPORT INFORMATION
  Report Type: Spontaneous
  Country: GB (occurrence: GB)
  Receive Date: 20150710
  Receipt Date: 20150710
  Transmission Date: 20151125
  Serious: Yes (Hospitalization)
  Sender: FDA-Public Use
  Company Number: GB-CIPLA LTD.-2015GB05602

PATIENT

DRUGS (3)
  1. COCODAMOL [Concomitant]
     Active Substance: ACETAMINOPHEN\CODEINE PHOSPHATE
     Dosage: 8/500. TWICE A DAY.
     Route: 048
  2. TERBINAFINE. [Suspect]
     Active Substance: TERBINAFINE
     Indication: NAIL INFECTION
     Dosage: 250 MG, QD
     Route: 048
     Dates: start: 20150514, end: 20150611
  3. SERTRALINE [Concomitant]
     Active Substance: SERTRALINE HYDROCHLORIDE
     Dosage: 100 MG, QD
     Route: 048

REACTIONS (2)
  - Generalised erythema [Recovering/Resolving]
  - Skin reaction [Recovering/Resolving]

NARRATIVE: CASE EVENT DATE: 20150608
